FAERS Safety Report 6458981-0 (Version None)
Quarter: 2009Q4

REPORT INFORMATION
  Report Type: 
  Country: None (occurrence: None)
  Receive Date: 20091125
  Receipt Date: 20091125
  Transmission Date: 20100525
  Serious: Yes (Other)
  Sender: FDA-Public Use
  Company Number: None

PATIENT
  Sex: Female
  Weight: 94.3482 kg

DRUGS (1)
  1. TRAZODONE HCL [Suspect]
     Indication: DEPRESSION
     Dosage: 50 MG ONCE AT NIGHT
     Dates: start: 20090917, end: 20090921

REACTIONS (3)
  - GAIT DISTURBANCE [None]
  - SHOCK [None]
  - TREMOR [None]
